FAERS Safety Report 4448294-0 (Version None)
Quarter: 2004Q3

REPORT INFORMATION
  Report Type: 
  Country: None (occurrence: None)
  Receive Date: 20040910
  Receipt Date: 20040830
  Transmission Date: 20050211
  Serious: Yes (Other)
  Sender: FDA-Public Use
  Company Number: 2004060360

PATIENT
  Age: 36 Year
  Sex: Male
  Weight: 81.6475 kg

DRUGS (1)
  1. LISTERINE ANTISEPTIC MOUTHWASH (EUCALYPTOL, MENTHOL, METHYL SALICYLATE [Suspect]
     Indication: TOOTHACHE
     Dosage: QD, ORAL TOPICAL
     Route: 061
     Dates: end: 20040830

REACTIONS (4)
  - DIZZINESS [None]
  - MEDICATION ERROR [None]
  - SWELLING FACE [None]
  - SWOLLEN TONGUE [None]
